FAERS Safety Report 7169316-2 (Version None)
Quarter: 2010Q4

REPORT INFORMATION
  Report Type: 
  Country: None (occurrence: None)
  Receive Date: 20101216
  Receipt Date: 20100113
  Transmission Date: 20110411
  Serious: No
  Sender: FDA-Public Use
  Company Number: US-AMGEN-KDL385671

PATIENT

DRUGS (11)
  1. ENBREL [Suspect]
     Indication: PRODUCT USED FOR UNKNOWN INDICATION
     Dosage: 50 MG, 2 TIMES/WK
     Route: 058
  2. CENTRUM [Concomitant]
     Dosage: UNK UNK, UNK
     Route: 048
  3. MONTELUKAST [Concomitant]
     Dosage: 10 MG, UNK
     Route: 048
  4. DESLORATADINE [Concomitant]
     Dosage: 5 MG, UNK
     Route: 048
  5. DILTIAZEM HYDROCHLORIDE [Concomitant]
     Dosage: 120 MG, QD
     Route: 048
  6. ENALAPRIL [Concomitant]
     Dosage: 5 MG, UNK
     Route: 048
  7. ESOMEPRAZOLE MAGNESIUM [Concomitant]
     Dosage: 40 MG, UNK
     Route: 048
  8. POTASSIUM CHLORIDE [Concomitant]
     Dosage: 20 MEQ, UNK
     Route: 048
  9. ROSUVASTATIN CALCIUM [Concomitant]
     Dosage: 5 MG, UNK
     Route: 048
  10. ASPIRIN [Concomitant]
     Dosage: 81 MG, UNK
     Route: 048
  11. CLOPIDOGREL BISULFATE [Concomitant]
     Dosage: 75 MG, UNK
     Route: 048

REACTIONS (2)
  - INJECTION SITE ERYTHEMA [None]
  - INJECTION SITE REACTION [None]
